FAERS Safety Report 14012976 (Version 1)
Quarter: 2017Q3

REPORT INFORMATION
  Report Type: Spontaneous
  Country: CG (occurrence: CG)
  Receive Date: 20170926
  Receipt Date: 20170926
  Transmission Date: 20171128
  Serious: Yes (Hospitalization, Other)
  Sender: FDA-Public Use
  Company Number: CG-GLAXOSMITHKLINE-CG2017GSK146488

PATIENT
  Age: 8 Year

DRUGS (1)
  1. ZINNAT [Suspect]
     Active Substance: CEFUROXIME AXETIL
     Indication: OTITIS MEDIA ACUTE
     Dosage: 250 MG, UNK
     Route: 048

REACTIONS (2)
  - Rash [Unknown]
  - Malaria [Unknown]
